FAERS Safety Report 5596523-2 (Version None)
Quarter: 2008Q1

REPORT INFORMATION
  Report Type: 
  Country: None (occurrence: None)
  Receive Date: 20080118
  Receipt Date: 20080108
  Transmission Date: 20080703
  Serious: Yes (Hospitalization, Other)
  Sender: FDA-Public Use
  Company Number: FR-PFIZER INC-2007085703

PATIENT
  Age: 57 Year
  Sex: Male
  Weight: 62 kg

DRUGS (4)
  1. TAHOR [Suspect]
     Indication: CORONARY ARTERY DISEASE
     Route: 048
  2. TAHOR [Suspect]
     Indication: CORONARY ARTERIAL STENT INSERTION
  3. PLAVIX [Suspect]
     Indication: CORONARY ARTERIAL STENT INSERTION
     Route: 048
  4. KARDEGIC [Concomitant]
     Route: 048

REACTIONS (3)
  - ARTHRALGIA [None]
  - MYALGIA [None]
  - RHEUMATOID ARTHRITIS [None]
